FAERS Safety Report 18772788 (Version 1)
Quarter: 2021Q1

REPORT INFORMATION
  Report Type: Spontaneous
  Country: US (occurrence: US)
  Receive Date: 20210121
  Receipt Date: 20210121
  Transmission Date: 20210419
  Serious: Yes (Hospitalization)
  Sender: FDA-Public Use
  Company Number: None

PATIENT
  Sex: Female

DRUGS (2)
  1. XELJANZ [Suspect]
     Active Substance: TOFACITINIB CITRATE
     Indication: ARTHRITIS
     Route: 048
     Dates: start: 20180823
  2. ROSUVASTATIN, FAMOTIDINE, LYRICA, VENLAFAXINE [Concomitant]

REACTIONS (2)
  - Anxiety [None]
  - Accident [None]
